FAERS Safety Report 6900435-9 (Version None)
Quarter: 2010Q3

REPORT INFORMATION
  Report Type: 
  Country: None (occurrence: None)
  Receive Date: 20100803
  Receipt Date: 20100722
  Transmission Date: 20110219
  Serious: Yes (Other)
  Sender: FDA-Public Use
  Company Number: JP-PFIZER INC-2010075574

PATIENT
  Age: 5 Year
  Sex: Female

DRUGS (1)
  1. SOMATROPIN [Suspect]
     Indication: SMALL FOR DATES BABY
     Dosage: UNK
     Route: 058
     Dates: start: 20100528

REACTIONS (1)
  - BRAIN NEOPLASM [None]
